FAERS Safety Report 18345486 (Version 1)
Quarter: 2020Q4

REPORT INFORMATION
  Report Type: Spontaneous
  Country: CN (occurrence: CN)
  Receive Date: 20201005
  Receipt Date: 20201005
  Transmission Date: 20210114
  Serious: Yes (Other)
  Sender: FDA-Public Use
  Company Number: CN-EAGLE PHARMACEUTICALS, INC.-CN-2020EAG000147

PATIENT
  Age: 64 Year
  Sex: Male

DRUGS (4)
  1. CISPLATIN. [Suspect]
     Active Substance: CISPLATIN
     Indication: LUNG ADENOCARCINOMA STAGE III
     Dosage: 40 MG, DAY 1-2 OF CYCLE
     Route: 065
     Dates: start: 2017
  2. CISPLATIN. [Suspect]
     Active Substance: CISPLATIN
     Dosage: 50 MG, DAY 3 OF CYCLE
     Route: 065
     Dates: start: 2017
  3. PEMETREXED. [Suspect]
     Active Substance: PEMETREXED
     Indication: LUNG ADENOCARCINOMA STAGE III
     Dosage: 1 G, DAY 1 OF CYCLE
     Route: 065
  4. RADIOTHERAPY [Suspect]
     Active Substance: RADIATION THERAPY
     Indication: LUNG ADENOCARCINOMA STAGE III
     Dosage: 58.0GY IN 29 FRACTIONS (2.0 GY*29) WITH SIB TO A TOTAL DOSE OF 63.8GY IN 29 FRACTIONS (2.2 GY*29)
     Route: 065

REACTIONS (1)
  - Leukopenia [Unknown]
